FAERS Safety Report 5321692-9 (Version None)
Quarter: 2007Q2

REPORT INFORMATION
  Report Type: 
  Country: None (occurrence: None)
  Receive Date: 20070510
  Receipt Date: 20070425
  Transmission Date: 20071010
  Serious: Yes (Other)
  Sender: FDA-Public Use
  Company Number: US-SHR-US-2007-014775

PATIENT
  Age: 61 Year
  Sex: Male

DRUGS (1)
  1. BETASERON [Suspect]
     Indication: SECONDARY PROGRESSIVE MULTIPLE SCLEROSIS
     Dosage: 8 MIU, EVERY 2D
     Route: 058
     Dates: start: 20030425

REACTIONS (5)
  - CORNEAL DISORDER [None]
  - DEFAECATION URGENCY [None]
  - INFREQUENT BOWEL MOVEMENTS [None]
  - OPTIC NERVE INJURY [None]
  - PROGRESSIVE MULTIPLE SCLEROSIS [None]
